FAERS Safety Report 19775335 (Version 1)
Quarter: 2021Q3

REPORT INFORMATION
  Report Type: Spontaneous
  Country: US (occurrence: US)
  Receive Date: 20210901
  Receipt Date: 20210901
  Transmission Date: 20211014
  Serious: No
  Sender: FDA-Public Use
  Company Number: US-BAYER-2021-203754

PATIENT
  Age: 49 Year
  Sex: Male

DRUGS (2)
  1. CLARITIN [Suspect]
     Active Substance: LORATADINE
     Indication: HYPERSENSITIVITY
     Dosage: 2 DF, ONCE
     Route: 048
     Dates: start: 20210825, end: 20210830
  2. CLARITIN [Suspect]
     Active Substance: LORATADINE
     Indication: NASOPHARYNGITIS

REACTIONS (2)
  - Drug ineffective [Unknown]
  - Incorrect dose administered [None]

NARRATIVE: CASE EVENT DATE: 202108
